FAERS Safety Report 10110119 (Version 1)
Quarter: 2014Q2

REPORT INFORMATION
  Report Type: Spontaneous
  Country: US (occurrence: None)
  Receive Date: 20140423
  Receipt Date: 20140423
  Transmission Date: 20141212
  Serious: Yes (Hospitalization, Other)
  Sender: FDA-Public Use
  Company Number: C-14-038

PATIENT
  Sex: Male
  Weight: 3.24 kg

DRUGS (1)
  1. CYCLOBENZAPRINE [Suspect]
     Indication: BACK PAIN

REACTIONS (3)
  - Foetal exposure during pregnancy [None]
  - Ductus arteriosus premature closure [None]
  - Persistent foetal circulation [None]
